FAERS Safety Report 10022747 (Version 2)
Quarter: 2014Q2

REPORT INFORMATION
  Report Type: Spontaneous
  Country: US (occurrence: US)
  Receive Date: 20140319
  Receipt Date: 20140507
  Transmission Date: 20141212
  Serious: Yes (Hospitalization)
  Sender: FDA-Public Use
  Company Number: US-GILEAD-2014-0097096

PATIENT
  Age: 39 Year
  Sex: Female

DRUGS (3)
  1. LETAIRIS [Suspect]
     Indication: PORTOPULMONARY HYPERTENSION
     Dosage: 10 MG, QD
     Route: 065
     Dates: start: 20130708
  2. REMODULIN [Concomitant]
  3. REVATIO [Concomitant]

REACTIONS (5)
  - Renal disorder [Unknown]
  - Pyrexia [Unknown]
  - Urticaria [Unknown]
  - Fluid retention [Unknown]
  - Oedema [Unknown]
